FAERS Safety Report 13972167 (Version 1)
Quarter: 2017Q3

REPORT INFORMATION
  Report Type: Spontaneous
  Country: FR (occurrence: FR)
  Receive Date: 20170914
  Receipt Date: 20170914
  Transmission Date: 20171128
  Serious: Yes (Hospitalization)
  Sender: FDA-Public Use
  Company Number: FR-SA-2017SA167752

PATIENT
  Age: 83 Year
  Sex: Male

DRUGS (13)
  1. ARICEPT [Concomitant]
     Active Substance: DONEPEZIL HYDROCHLORIDE
     Dosage: 5 MG, ORODISPERSIBLE TABLET
     Route: 048
  2. DIAMICRON [Concomitant]
     Active Substance: GLICLAZIDE
     Dosage: FORM : DIAMICRON (GLICLAZIDE) 60 MG, MODIFIED RELEASE DIVISIBLE TABLET
     Route: 048
  3. DEROXAT [Concomitant]
     Active Substance: PAROXETINE HYDROCHLORIDE
     Dosage: FILM COATED DIVISIBLE TABLET
     Route: 048
  4. JANUMET [Concomitant]
     Active Substance: METFORMIN HYDROCHLORIDE\SITAGLIPTIN PHOSPHATE
     Dosage: 50 MG/1000 MG, FILM COATED TABLET
     Route: 048
  5. PANTOPRAZOLE [Concomitant]
     Active Substance: PANTOPRAZOLE
     Route: 048
  6. PLAVIX [Suspect]
     Active Substance: CLOPIDOGREL BISULFATE
     Indication: CEREBROVASCULAR ACCIDENT PROPHYLAXIS
     Route: 048
  7. LASILIX FAIBLE [Concomitant]
     Active Substance: FUROSEMIDE
     Dosage: IN MORNING
     Route: 048
  8. KEPPRA [Concomitant]
     Active Substance: LEVETIRACETAM
     Route: 048
  9. DUOTRAV [Concomitant]
     Active Substance: TIMOLOL MALEATE\TRAVOPROST
     Dosage: 40 MICROGRAMS/ML + 5 MG/ML, EYE DROPS IN SOLUTION
     Route: 047
  10. ENALAPRIL [Concomitant]
     Active Substance: ENALAPRIL
     Route: 048
  11. LERCAN [Concomitant]
     Active Substance: LERCANIDIPINE
     Route: 048
  12. DEPAMIDE [Concomitant]
     Active Substance: VALPROMIDE
     Dosage: 300 MG GASTRO-RESISTANT FILM COATED TABLET
     Route: 048
  13. XANAX [Concomitant]
     Active Substance: ALPRAZOLAM
     Dosage: DOSE :0.25, HALF IN MORNING AND NOON AND 1 IN EVENING?FORM :DIVISIBLE TABLET
     Route: 048

REACTIONS (1)
  - Intraventricular haemorrhage [Not Recovered/Not Resolved]

NARRATIVE: CASE EVENT DATE: 20170813
